FAERS Safety Report 14348652 (Version 1)
Quarter: 2018Q1

REPORT INFORMATION
  Report Type: Spontaneous
  Country: GR (occurrence: GR)
  Receive Date: 20180103
  Receipt Date: 20180103
  Transmission Date: 20180509
  Serious: Yes (Other)
  Sender: FDA-Public Use
  Company Number: GR-CIPLA LTD.-2017GR30456

PATIENT

DRUGS (2)
  1. CARBOPLATIN. [Suspect]
     Active Substance: CARBOPLATIN
     Indication: VULVAL CANCER METASTATIC
     Dosage: UNK, (CYCLICAL)
     Route: 065
  2. PACLITAXEL. [Suspect]
     Active Substance: PACLITAXEL
     Indication: VULVAL CANCER METASTATIC
     Dosage: UNK, (CYCLICAL)
     Route: 065

REACTIONS (1)
  - Pseudomembranous colitis [Unknown]
